FAERS Safety Report 20920411 (Version 1)
Quarter: 2022Q2

REPORT INFORMATION
  Report Type: Spontaneous
  Country: US (occurrence: None)
  Receive Date: 20220606
  Receipt Date: 20220606
  Transmission Date: 20220721
  Serious: Yes (Death)
  Sender: FDA-Public Use
  Company Number: None

PATIENT
  Age: 87 Year
  Sex: Male
  Weight: 63.96 kg

DRUGS (1)
  1. APIXABAN [Suspect]
     Active Substance: APIXABAN
     Indication: Atrial fibrillation
     Dosage: 1 TAB EVERY DAY PO?
     Route: 048
     Dates: end: 20220403

REACTIONS (7)
  - Lactic acidosis [None]
  - Fall [None]
  - Haematoma [None]
  - Peripheral ischaemia [None]
  - Peripheral vascular disorder [None]
  - Peripheral artery aneurysm [None]
  - Haemorrhage [None]

NARRATIVE: CASE EVENT DATE: 20220404
